FAERS Safety Report 21173619 (Version 1)
Quarter: 2022Q3

REPORT INFORMATION
  Report Type: Spontaneous
  Country: US (occurrence: US)
  Receive Date: 20220804
  Receipt Date: 20220804
  Transmission Date: 20221026
  Serious: No
  Sender: FDA-Public Use
  Company Number: US-PERRIGO-21US009753

PATIENT
  Sex: Female

DRUGS (1)
  1. LORATADINE [Suspect]
     Active Substance: LORATADINE
     Indication: Nasopharyngitis
     Dosage: 10 MG, QD
     Route: 048
     Dates: start: 20210709, end: 20210714

REACTIONS (3)
  - Tremor [Recovered/Resolved]
  - Dizziness [Recovered/Resolved]
  - Drug effective for unapproved indication [Recovered/Resolved]

NARRATIVE: CASE EVENT DATE: 20210714
